FAERS Safety Report 6501751-5 (Version None)
Quarter: 2009Q4

REPORT INFORMATION
  Report Type: 
  Country: None (occurrence: None)
  Receive Date: 20091216
  Receipt Date: 20091204
  Transmission Date: 20100525
  Serious: Yes (Other)
  Sender: FDA-Public Use
  Company Number: US-PFIZER INC-2009292389

PATIENT
  Sex: Female
  Weight: 78.912 kg

DRUGS (6)
  1. LYRICA [Suspect]
     Indication: PAIN IN EXTREMITY
     Dosage: 50 MG, 1X/DAY
     Route: 048
     Dates: start: 20091029
  2. CIPROFLOXACIN [Suspect]
     Indication: CYSTITIS
     Dosage: UNK
     Route: 048
     Dates: start: 20090101, end: 20090101
  3. SINEMET [Concomitant]
     Dosage: 12.5/125MG, UNK
  4. ASPIRIN [Concomitant]
     Dosage: UNK
  5. BENICAR [Concomitant]
     Indication: HYPERTENSION
     Dosage: UNK
  6. CORTISONE [Concomitant]
     Dosage: UNK

REACTIONS (9)
  - CYSTITIS [None]
  - FEAR [None]
  - FEELING ABNORMAL [None]
  - FEELING DRUNK [None]
  - HEART RATE INCREASED [None]
  - HYPERHIDROSIS [None]
  - HYPERTENSION [None]
  - MALAISE [None]
  - TREMOR [None]
